FAERS Safety Report 6383705-5 (Version None)
Quarter: 2009Q4

REPORT INFORMATION
  Report Type: 
  Country: None (occurrence: None)
  Receive Date: 20091001
  Receipt Date: 20090918
  Transmission Date: 20100525
  Serious: Yes (Hospitalization, Other)
  Sender: FDA-Public Use
  Company Number: US-PFIZER INC-2008150458

PATIENT
  Sex: Male
  Weight: 90.7 kg

DRUGS (4)
  1. GEODON [Suspect]
     Indication: ABNORMAL BEHAVIOUR
     Dosage: UNK
  2. LAMICTAL [Concomitant]
     Indication: CONVULSION
     Dosage: 100 MG, 2X/DAY
  3. SEROQUEL [Concomitant]
     Dosage: UNK
  4. PROPRANOLOL [Concomitant]

REACTIONS (10)
  - ABNORMAL BEHAVIOUR [None]
  - AGGRESSION [None]
  - ANTICONVULSANT DRUG LEVEL DECREASED [None]
  - DRUG INEFFECTIVE [None]
  - DYSKINESIA [None]
  - HALLUCINATIONS, MIXED [None]
  - LOWER LIMB FRACTURE [None]
  - POVERTY OF SPEECH [None]
  - SLEEP DISORDER [None]
  - TREMOR [None]
